FAERS Safety Report 12460203 (Version 1)
Quarter: 2016Q2

REPORT INFORMATION
  Report Type: Report from Study
  Country: CO (occurrence: CO)
  Receive Date: 20160613
  Receipt Date: 20160613
  Transmission Date: 20160815
  Serious: Yes (Death, Hospitalization, Other)
  Sender: FDA-Public Use
  Company Number: PHHY2016CO073499

PATIENT
  Age: 47 Year
  Sex: Female

DRUGS (2)
  1. AROMASIN [Concomitant]
     Active Substance: EXEMESTANE
     Indication: BREAST CANCER
     Dosage: 1 DF OF 25 MG, QD
     Route: 048
  2. AFINITOR [Suspect]
     Active Substance: EVEROLIMUS
     Indication: BREAST CANCER
     Dosage: 1 DF OF 10 MG, QD
     Route: 048
     Dates: start: 20160504

REACTIONS (19)
  - Cardio-respiratory arrest [Fatal]
  - Pain [Unknown]
  - Apathy [Unknown]
  - Vomiting [Unknown]
  - Breast mass [Unknown]
  - Diarrhoea [Unknown]
  - Condition aggravated [Unknown]
  - Breast pain [Unknown]
  - Dyspnoea [Unknown]
  - Skin exfoliation [Unknown]
  - Somnolence [Unknown]
  - Hypophagia [Unknown]
  - Malaise [Unknown]
  - Gastric disorder [Unknown]
  - Abasia [Unknown]
  - Pulmonary embolism [Not Recovered/Not Resolved]
  - Breast enlargement [Unknown]
  - General physical health deterioration [Unknown]
  - Oral mucosal exfoliation [Unknown]

NARRATIVE: CASE EVENT DATE: 20160525
